FAERS Safety Report 5264526-3 (Version None)
Quarter: 2007Q1

REPORT INFORMATION
  Report Type: 
  Country: None (occurrence: None)
  Receive Date: 20070314
  Receipt Date: 20070302
  Transmission Date: 20070707
  Serious: Yes (Other)
  Sender: FDA-Public Use
  Company Number: PHEH2006US14731

PATIENT
  Age: 55 Year
  Sex: Female
  Weight: 85.714 kg

DRUGS (9)
  1. ZOMETA [Suspect]
     Indication: METASTASES TO BONE
     Dosage: 4 MG EVERY 28 DAYS
     Dates: start: 20060605, end: 20060711
  2. AVASTIN [Concomitant]
     Indication: BREAST CANCER
     Dosage: 900 MG, EVERY OTHE WEEK
     Dates: start: 20060131, end: 20070221
  3. XELODA [Concomitant]
     Indication: BREAST CANCER
     Dosage: 100 MG BID 14 DAYS ON 7 DAYS OFF
     Dates: start: 20060131, end: 20070221
  4. GEMZAR [Concomitant]
     Indication: BREAST CANCER
     Dosage: Q WEEKLY X 3 WEEKS THEN 1 WEEK OFF
     Dates: start: 20040621, end: 20041227
  5. HERCEPTIN [Concomitant]
     Indication: BREAST CANCER
     Dosage: 160 MG, QW
     Dates: start: 20040705, end: 20041227
  6. HERCEPTIN [Concomitant]
     Dosage: 160 MG, QW
     Dates: start: 20051031, end: 20060116
  7. DECADRON [Concomitant]
     Indication: NAUSEA
     Dosage: 10 MG Q WEEK THEN 3 WEEKS OFF
     Dates: start: 20040621, end: 20041227
  8. DECADRON [Concomitant]
     Dosage: 20 MG Q THREE WEEKS
     Dates: start: 20050114, end: 20050408
  9. TAXOTERE [Concomitant]
     Indication: BREAST CANCER
     Dosage: 125 MG EVERY THREE WEEKS
     Dates: start: 20050114, end: 20050408

REACTIONS (4)
  - BONE DISORDER [None]
  - OSTEONECROSIS [None]
  - TOOTH EXTRACTION [None]
  - TOOTHACHE [None]
